FAERS Safety Report 9531218 (Version 1)
Quarter: 2013Q3

REPORT INFORMATION
  Report Type: Spontaneous
  Country: US (occurrence: None)
  Receive Date: 20130916
  Receipt Date: 20130916
  Transmission Date: 20140515
  Serious: Yes (Disabling)
  Sender: FDA-Public Use
  Company Number: None

PATIENT
  Age: 62 Year
  Sex: Female
  Weight: 54.43 kg

DRUGS (7)
  1. SENSIPAR [Suspect]
     Indication: HYPERPARATHYROIDISM
     Dosage: ONCE DAILY
     Route: 048
     Dates: start: 20130401, end: 20130823
  2. HYDROCHLOROTHIAZIDE [Concomitant]
  3. FLAXSEED OIL [Concomitant]
  4. VITAMIN C [Concomitant]
  5. MAGNESIUM [Concomitant]
  6. VITAMIN D3 [Concomitant]
  7. VIT. K (MK-7) [Concomitant]

REACTIONS (9)
  - Diarrhoea [None]
  - Decreased appetite [None]
  - Weight decreased [None]
  - Fatigue [None]
  - Dyspepsia [None]
  - Off label use [None]
  - Impaired work ability [None]
  - Gastrointestinal disorder [None]
  - Gastric ulcer [None]
